FAERS Safety Report 13861202 (Version 3)
Quarter: 2018Q1

REPORT INFORMATION
  Report Type: Spontaneous
  Country: DE (occurrence: DE)
  Receive Date: 20170811
  Receipt Date: 20180302
  Transmission Date: 20180508
  Serious: Yes (Hospitalization)
  Sender: FDA-Public Use
  Company Number: DE-SA-2017SA143748

PATIENT
  Sex: Female

DRUGS (6)
  1. FENISTIL [Concomitant]
     Active Substance: DIMETHINDENE
     Route: 048
  2. PANTOPRAZOLE [Concomitant]
     Active Substance: PANTOPRAZOLE
     Indication: PROPHYLAXIS
     Route: 048
  3. KALIUM ^VERLA^ [Concomitant]
     Indication: HYPOKALAEMIA
     Dosage: DOSE: 3
     Route: 048
     Dates: start: 20170731
  4. LEMTRADA [Suspect]
     Active Substance: ALEMTUZUMAB
     Indication: MULTIPLE SCLEROSIS
     Route: 041
     Dates: start: 20160926, end: 20160930
  5. LEMTRADA [Suspect]
     Active Substance: ALEMTUZUMAB
     Indication: MULTIPLE SCLEROSIS
     Route: 041
     Dates: start: 20170731
  6. ACYCLOVIR. [Concomitant]
     Active Substance: ACYCLOVIR
     Route: 048

REACTIONS (24)
  - Alanine aminotransferase increased [Unknown]
  - General physical health deterioration [Recovering/Resolving]
  - Blood glucose increased [Not Recovered/Not Resolved]
  - Aspartate aminotransferase increased [Unknown]
  - Asthenia [Recovering/Resolving]
  - Red blood cell count increased [Unknown]
  - Monocyte percentage decreased [Unknown]
  - C-reactive protein increased [Unknown]
  - Amylase decreased [Unknown]
  - Eosinophil count decreased [Unknown]
  - Hepatic steatosis [Unknown]
  - Blood potassium decreased [Unknown]
  - White blood cell count increased [Unknown]
  - Neutrophil percentage increased [Unknown]
  - Eosinophil percentage decreased [Unknown]
  - Gamma-glutamyltransferase increased [Unknown]
  - Blood bilirubin increased [Unknown]
  - Basophil percentage decreased [Unknown]
  - Lymphocyte count decreased [Unknown]
  - Liver function test increased [Unknown]
  - Basophil count decreased [Unknown]
  - Neutrophil count increased [Unknown]
  - Lymphocyte percentage decreased [Unknown]
  - Monocyte count decreased [Unknown]

NARRATIVE: CASE EVENT DATE: 20170731
